FAERS Safety Report 8784250 (Version 1)
Quarter: 2012Q4

REPORT INFORMATION
  Report Type: Spontaneous
  Country: US (occurrence: None)
  Receive Date: 20120905
  Receipt Date: 20120905
  Transmission Date: 20130627
  Serious: Yes (Disabling)
  Sender: FDA-Public Use
  Company Number: None

PATIENT
  Age: 65 Year
  Sex: Female
  Weight: 61.24 kg

DRUGS (4)
  1. SEPTOCAINE [Suspect]
     Indication: TOOTH EXTRACTION
     Dates: start: 20110421, end: 20110421
  2. SEPTOCAINE [Suspect]
     Indication: DENTAL CLEANING
     Dates: start: 20110421, end: 20110421
  3. SEPTOCAINE [Suspect]
     Indication: TOOTH EXTRACTION
     Dates: start: 20120607, end: 20120607
  4. SEPTOCAINE [Suspect]
     Indication: DENTAL CLEANING
     Dates: start: 20120607, end: 20120607

REACTIONS (2)
  - Oral discomfort [None]
  - Nerve injury [None]
